FAERS Safety Report 20583452 (Version 2)
Quarter: 2022Q1

REPORT INFORMATION
  Report Type: Spontaneous
  Country: US (occurrence: US)
  Receive Date: 20220311
  Receipt Date: 20220324
  Transmission Date: 20220424
  Serious: Yes (Hospitalization)
  Sender: FDA-Public Use
  Company Number: US-ALLERGAN-2208061US

PATIENT
  Sex: Male

DRUGS (1)
  1. BOTOX [Suspect]
     Active Substance: ONABOTULINUMTOXINA
     Indication: Vocal cord dysfunction
     Dosage: UNK, SINGLE
     Dates: start: 202203, end: 202203

REACTIONS (3)
  - Throat tightness [Unknown]
  - Dysphagia [Unknown]
  - Off label use [Unknown]
